FAERS Safety Report 18579038 (Version 1)
Quarter: 2020Q4

REPORT INFORMATION
  Report Type: Spontaneous
  Country: US (occurrence: US)
  Receive Date: 20201204
  Receipt Date: 20201204
  Transmission Date: 20210114
  Serious: Yes (Other)
  Sender: FDA-Public Use
  Company Number: US-BAUSCH-BL-2020-034992

PATIENT
  Age: 27 Year
  Sex: Female
  Weight: 160 kg

DRUGS (14)
  1. MIRTAZAPINE. [Concomitant]
     Active Substance: MIRTAZAPINE
     Indication: PRODUCT USED FOR UNKNOWN INDICATION
     Dosage: AT BEDTIME
  2. PRAZOSIN. [Concomitant]
     Active Substance: PRAZOSIN
     Indication: PRODUCT USED FOR UNKNOWN INDICATION
     Dosage: AT BEDTIME
  3. BUPROPION. [Concomitant]
     Active Substance: BUPROPION
     Indication: PRODUCT USED FOR UNKNOWN INDICATION
  4. HYDROCORTISONE. [Suspect]
     Active Substance: HYDROCORTISONE
     Indication: HYPOGLYCAEMIA
     Dosage: TRIAL DOSE
     Route: 040
  5. LITHIUM. [Concomitant]
     Active Substance: LITHIUM
     Indication: PRODUCT USED FOR UNKNOWN INDICATION
  6. GLUCAGON. [Concomitant]
     Active Substance: GLUCAGON
     Dosage: TITRATION OF THE IV GLUCAGON INFUSION TO 4 MG/HOUR
     Route: 042
  7. GLUCAGON. [Concomitant]
     Active Substance: GLUCAGON
     Indication: HYPOGLYCAEMIA
     Dosage: THREE 1 MG DOSES OF INTRAMUSCULAR (IM) GLUCAGON
     Route: 030
  8. DEXTROSE. [Concomitant]
     Active Substance: DEXTROSE
     Dosage: 50-GRAM AMPULES OF DEXTROSE 50% (D50) IV
     Route: 042
  9. HYDROCORTISONE. [Suspect]
     Active Substance: HYDROCORTISONE
     Route: 040
  10. GLUCAGON. [Concomitant]
     Active Substance: GLUCAGON
     Dosage: AT 1 MG/HR ON HOSPITAL DAY TWO
     Route: 042
  11. GLUCAGON. [Concomitant]
     Active Substance: GLUCAGON
     Dosage: TITRATED TO 2 MG/HOUR
     Route: 042
  12. DULOXETINE. [Concomitant]
     Active Substance: DULOXETINE
     Indication: PRODUCT USED FOR UNKNOWN INDICATION
  13. TRAZODONE [Concomitant]
     Active Substance: TRAZODONE HYDROCHLORIDE
     Indication: PRODUCT USED FOR UNKNOWN INDICATION
     Dosage: AT BEDTIME
  14. DEXTROSE. [Concomitant]
     Active Substance: DEXTROSE
     Indication: HYPOGLYCAEMIA
     Dosage: AT 300 ML/HOUR 30 MINUTES
     Route: 042

REACTIONS (1)
  - Hyperglycaemia [Recovered/Resolved]
